FAERS Safety Report 5956105-7 (Version None)
Quarter: 2008Q4

REPORT INFORMATION
  Report Type: 
  Country: None (occurrence: None)
  Receive Date: 20081112
  Receipt Date: 20081107
  Transmission Date: 20090506
  Serious: Yes (Hospitalization)
  Sender: FDA-Public Use
  Company Number: 1000001189

PATIENT
  Age: 79 Year
  Sex: Female
  Weight: 46 kg

DRUGS (6)
  1. MEMANTINE HCL [Suspect]
     Indication: DEMENTIA ALZHEIMER'S TYPE
     Dosage: 20 MG (20 MG, 1 IN 1 D), ORAL
     Route: 048
     Dates: start: 20060528, end: 20080920
  2. FERROUS CITRATE [Suspect]
     Indication: DEMENTIA ALZHEIMER'S TYPE
     Dosage: 1.2 G (1.2 GM), ORAL
     Route: 048
     Dates: start: 20061119, end: 20080918
  3. PYRIDOXAL CALCIUM PHOSPHATE [Suspect]
     Indication: DEMENTIA ALZHEIMER'S TYPE
     Dosage: 0.6 GM (0.6 GM), ORAL
     Route: 048
     Dates: start: 20080217, end: 20080918
  4. TPN [Suspect]
     Indication: NUTRITIONAL SUPPORT
     Dosage: 400 ML (400 ML), ORAL
     Route: 048
     Dates: start: 20080608, end: 20080916
  5. SODIUM PICOSULFATE [Suspect]
     Indication: CONSTIPATION
     Dosage: ORAL
     Route: 048
     Dates: start: 20071204, end: 20080916
  6. FURSULTIAMINE [Suspect]
     Indication: NUTRITIONAL SUPPORT
     Dosage: 100 MG (100 MG), ORAL
     Route: 048
     Dates: start: 20070422, end: 20080916

REACTIONS (2)
  - DYSPHAGIA [None]
  - PYELONEPHRITIS [None]
